FAERS Safety Report 16317096 (Version 4)
Quarter: 2020Q3

REPORT INFORMATION
  Report Type: Spontaneous
  Country: US (occurrence: US)
  Receive Date: 20190515
  Receipt Date: 20200708
  Transmission Date: 20201102
  Serious: No
  Sender: FDA-Public Use
  Company Number: US-SA-2019SA129516

PATIENT

DRUGS (2)
  1. DUPIXENT [Suspect]
     Active Substance: DUPILUMAB
     Indication: DERMATITIS
     Dosage: 300 MG, QOW
     Route: 058
     Dates: start: 20181205
  2. DUPIXENT [Suspect]
     Active Substance: DUPILUMAB
     Indication: IDIOPATHIC URTICARIA

REACTIONS (5)
  - Skin irritation [Recovered/Resolved]
  - Skin infection [Unknown]
  - Skin disorder [Unknown]
  - Product use in unapproved indication [Unknown]
  - Eye irritation [Unknown]

NARRATIVE: CASE EVENT DATE: 20181205
